FAERS Safety Report 4721626-1 (Version None)
Quarter: 2005Q3

REPORT INFORMATION
  Report Type: 
  Country: None (occurrence: None)
  Receive Date: 20050721
  Receipt Date: 20050120
  Transmission Date: 20060218
  Serious: No
  Sender: FDA-Public Use
  Company Number: US-BRISTOL-MYERS SQUIBB COMPANY-12832820

PATIENT
  Age: 82 Year
  Sex: Male
  Weight: 95 kg

DRUGS (8)
  1. COUMADIN [Suspect]
     Indication: ATRIAL FIBRILLATION
     Dosage: START1 YR AGO X 3 MONTHS; STOPPED;RESTARTED ON 10/28/04;LAST DOSE 2.5MG ALTERNATE 5MG;STOP 12/24/04
     Route: 048
     Dates: start: 20040101, end: 20041201
  2. BUMEX [Concomitant]
  3. HYDROCHLOROTHIAZIDE [Concomitant]
  4. COZAAR [Concomitant]
  5. ZESTRIL [Concomitant]
  6. CATAPRES [Concomitant]
     Route: 023
  7. DIGITEK [Concomitant]
  8. INSULIN [Concomitant]

REACTIONS (7)
  - DEPRESSION [None]
  - ERYTHEMA [None]
  - FATIGUE [None]
  - FEELING ABNORMAL [None]
  - PRURITUS [None]
  - SKIN ULCER [None]
  - URTICARIA [None]
